FAERS Safety Report 18484247 (Version 1)
Quarter: 2020Q4

REPORT INFORMATION
  Report Type: Spontaneous
  Country: US (occurrence: US)
  Receive Date: 20201110
  Receipt Date: 20201110
  Transmission Date: 20210114
  Serious: Yes (Disabling, Other)
  Sender: FDA-Public Use
  Company Number: US-REGENERON PHARMACEUTICALS, INC.-2020-86382

PATIENT

DRUGS (1)
  1. EYLEA [Suspect]
     Active Substance: AFLIBERCEPT
     Indication: PRODUCT USED FOR UNKNOWN INDICATION
     Dosage: RIGHT EYE
     Route: 031
     Dates: start: 20201102

REACTIONS (10)
  - Eye irritation [Unknown]
  - Swelling face [Unknown]
  - Ocular hyperaemia [Unknown]
  - Blindness [Unknown]
  - Rhinorrhoea [Unknown]
  - Injection site haemorrhage [Unknown]
  - Swelling of eyelid [Unknown]
  - Headache [Unknown]
  - Insomnia [Unknown]
  - Lacrimation increased [Unknown]

NARRATIVE: CASE EVENT DATE: 20201102
